FAERS Safety Report 7598268-6 (Version None)
Quarter: 2011Q3

REPORT INFORMATION
  Report Type: 
  Country: None (occurrence: None)
  Receive Date: 20110708
  Receipt Date: 20110630
  Transmission Date: 20111222
  Serious: Yes (Death, Life-Threatening, Hospitalization)
  Sender: FDA-Public Use
  Company Number: FR-ELI_LILLY_AND_COMPANY-FR201106008814

PATIENT
  Sex: Male
  Weight: 54 kg

DRUGS (17)
  1. EFFEXOR [Concomitant]
  2. KETOPROFEN [Concomitant]
     Dosage: 200 MG, QD
  3. FORLAX [Concomitant]
     Dosage: TWICE DAILLY
  4. CRESTOR [Concomitant]
     Dosage: 10 MG, QD
  5. BRICANYL [Concomitant]
     Dosage: THREE TIMES DAILY
  6. LYRICA [Concomitant]
     Dosage: 25 MG, BID
  7. LEVOTHYROXINE SODIUM [Concomitant]
     Dosage: 125 UG, QD
  8. FENTANYL CITRATE [Concomitant]
     Dosage: 100 UG, UNK
  9. ALIMTA [Suspect]
     Dosage: 500 MG/M2, THREE WEEKS
     Route: 042
     Dates: start: 20110117, end: 20110207
  10. PERISTALTINE [Concomitant]
  11. ASPIRIN [Concomitant]
     Dosage: 75 MG, QD
  12. DURAGESIC-100 [Concomitant]
     Dosage: 50 UG, EVERY HOUR
  13. CLONAZEPAM [Concomitant]
     Dosage: DAILY
  14. ELOXATIN [Concomitant]
     Dosage: 100 MG/M2, THREE WEEKS
     Dates: start: 20110117, end: 20110207
  15. RABEPRAZOLE SODIUM [Concomitant]
     Dosage: 20 MG, QD
     Route: 048
  16. VITAMIN B-12 [Concomitant]
  17. PREDNISONE [Concomitant]
     Dosage: 20 MG, QD

REACTIONS (1)
  - SEPTIC SHOCK [None]
